FAERS Safety Report 13966276 (Version 1)
Quarter: 2017Q3

REPORT INFORMATION
  Report Type: Spontaneous
  Country: FR (occurrence: FR)
  Receive Date: 20170913
  Receipt Date: 20170913
  Transmission Date: 20171128
  Serious: Yes (Other)
  Sender: FDA-Public Use
  Company Number: FR-MERCK KGAA-2026052

PATIENT
  Sex: Female

DRUGS (1)
  1. NOVOTHYROX [Suspect]
     Active Substance: LEVOTHYROXINE SODIUM
     Indication: PRODUCT USED FOR UNKNOWN INDICATION
     Route: 065
     Dates: start: 201704

REACTIONS (11)
  - Hyperthyroidism [Unknown]
  - Alopecia [Unknown]
  - Palpitations [Unknown]
  - Eye disorder [Unknown]
  - Fatigue [Unknown]
  - Tremor [Unknown]
  - Dysphagia [Unknown]
  - Blood pressure decreased [Unknown]
  - Dry eye [Unknown]
  - Dry mouth [Unknown]
  - Pruritus [Unknown]
